FAERS Safety Report 16644159 (Version 2)
Quarter: 2019Q3

REPORT INFORMATION
  Report Type: Spontaneous
  Country: VN (occurrence: VN)
  Receive Date: 20190729
  Receipt Date: 20190730
  Transmission Date: 20191004
  Serious: Yes (Death)
  Sender: FDA-Public Use
  Company Number: PHHY2019VN120258

PATIENT
  Age: 42 Year
  Sex: Male

DRUGS (2)
  1. SPEXIB [Suspect]
     Active Substance: CERITINIB
     Indication: NON-SMALL CELL LUNG CANCER
     Dosage: 450 MG, QD
     Route: 048
     Dates: start: 20190514
  2. SPEXIB [Suspect]
     Active Substance: CERITINIB
     Dosage: 300 MG, QD
     Route: 065

REACTIONS (5)
  - Nausea [Unknown]
  - Non-small cell lung cancer [Fatal]
  - Malignant neoplasm progression [Fatal]
  - Vomiting [Unknown]
  - Diarrhoea [Unknown]

NARRATIVE: CASE EVENT DATE: 20190518
